FAERS Safety Report 9152403 (Version 1)
Quarter: 2013Q1

REPORT INFORMATION
  Report Type: Spontaneous
  Country: US (occurrence: US)
  Receive Date: 20130308
  Receipt Date: 20130308
  Transmission Date: 20140127
  Serious: Yes (Other)
  Sender: FDA-Public Use
  Company Number: US-ASTRAZENECA-2013SE07436

PATIENT
  Sex: Female

DRUGS (1)
  1. ZOMIG ZMT [Suspect]
     Indication: HEADACHE
     Route: 048

REACTIONS (2)
  - Blindness transient [Unknown]
  - Headache [Unknown]
